FAERS Safety Report 10734599 (Version 1)
Quarter: 2015Q1

REPORT INFORMATION
  Report Type: Spontaneous
  Country: US (occurrence: US)
  Receive Date: 20150123
  Receipt Date: 20150123
  Transmission Date: 20150721
  Serious: No
  Sender: FDA-Public Use
  Company Number: US-PFIZER INC-2015024976

PATIENT
  Age: 18 Year
  Sex: Female
  Weight: 48 kg

DRUGS (1)
  1. ADVIL [Suspect]
     Active Substance: IBUPROFEN
     Indication: HEADACHE
     Dosage: 200 MG, 2X/DAY
     Dates: start: 20150104, end: 20150104

REACTIONS (1)
  - Throat irritation [Unknown]

NARRATIVE: CASE EVENT DATE: 20150104
